FAERS Safety Report 23797797 (Version 1)
Quarter: 2024Q2

REPORT INFORMATION
  Report Type: Spontaneous
  Country: BE (occurrence: BE)
  Receive Date: 20240430
  Receipt Date: 20240430
  Transmission Date: 20240716
  Serious: Yes (Other)
  Sender: FDA-Public Use
  Company Number: BE-BELUSA-2024BELLIT0041

PATIENT

DRUGS (7)
  1. PANTOPRAZOLE SODIUM [Suspect]
     Active Substance: PANTOPRAZOLE SODIUM
     Indication: Product used for unknown indication
     Dosage: ONCE A DAY
     Route: 065
  2. PANCREATIN [Concomitant]
     Active Substance: PANCRELIPASE
     Indication: Product used for unknown indication
     Route: 065
  3. CHOLECALCIFEROL [Concomitant]
     Active Substance: CHOLECALCIFEROL
     Indication: Product used for unknown indication
     Route: 065
  4. VITAMIN C [Concomitant]
     Active Substance: ASCORBIC ACID
     Indication: Product used for unknown indication
     Route: 065
  5. PERINDOPRIL [Concomitant]
     Active Substance: PERINDOPRIL
     Indication: Essential hypertension
     Route: 065
  6. INDAPAMIDE [Concomitant]
     Active Substance: INDAPAMIDE
     Indication: Essential hypertension
     Route: 065
  7. CAPECITABINE [Concomitant]
     Active Substance: CAPECITABINE
     Route: 065

REACTIONS (2)
  - Renal tubular necrosis [Unknown]
  - Tubulointerstitial nephritis [Unknown]
